FAERS Safety Report 6078422-5 (Version None)
Quarter: 2009Q1

REPORT INFORMATION
  Report Type: 
  Country: None (occurrence: None)
  Receive Date: 20090212
  Receipt Date: 20090203
  Transmission Date: 20090719
  Serious: Yes (Life-Threatening, Hospitalization)
  Sender: FDA-Public Use
  Company Number: 20096167

PATIENT
  Sex: Female

DRUGS (1)
  1. LIORESAL [Suspect]
     Indication: MUSCLE SPASTICITY
     Dosage: MCG,DAILY,INTRATHECAL
     Route: 037

REACTIONS (10)
  - ANXIETY [None]
  - CATHETER RELATED COMPLICATION [None]
  - COMA [None]
  - COMPLICATION OF DEVICE REMOVAL [None]
  - DRUG INEFFECTIVE [None]
  - HYPERTONIA [None]
  - INTRACRANIAL HYPOTENSION [None]
  - PANIC ATTACK [None]
  - PRURITUS [None]
  - WITHDRAWAL SYNDROME [None]
